FAERS Safety Report 8443848-9 (Version None)
Quarter: 2012Q2

REPORT INFORMATION
  Report Type: 
  Country: None (occurrence: None)
  Receive Date: 20120618
  Receipt Date: 20120614
  Transmission Date: 20120825
  Serious: Yes (Death, Hospitalization, Other)
  Sender: FDA-Public Use
  Company Number: US-US-EMD SERONO, INC.-7020765

PATIENT
  Sex: Female
  Weight: 54 kg

DRUGS (17)
  1. NOVANTRONE [Concomitant]
     Indication: PRODUCT USED FOR UNKNOWN INDICATION
     Dates: start: 20091001
  2. BACLOFEN [Concomitant]
     Indication: PRODUCT USED FOR UNKNOWN INDICATION
  3. OXYBUTYNIN [Concomitant]
     Indication: PRODUCT USED FOR UNKNOWN INDICATION
  4. REBIF [Suspect]
     Dates: start: 20100601
  5. VICODIN [Concomitant]
     Indication: PRODUCT USED FOR UNKNOWN INDICATION
  6. LASIX [Concomitant]
     Indication: PRODUCT USED FOR UNKNOWN INDICATION
  7. REBIF [Suspect]
     Dates: end: 20080401
  8. DURAGESIC-100 [Concomitant]
     Indication: PRODUCT USED FOR UNKNOWN INDICATION
  9. REBIF [Suspect]
     Indication: MULTIPLE SCLEROSIS
     Dates: start: 20030101, end: 20060101
  10. FOSAMAX [Concomitant]
     Indication: PRODUCT USED FOR UNKNOWN INDICATION
  11. FLEXERIL [Concomitant]
     Indication: PRODUCT USED FOR UNKNOWN INDICATION
  12. REBIF [Suspect]
     Route: 058
     Dates: start: 20070401
  13. LIDODERM [Concomitant]
     Indication: PRODUCT USED FOR UNKNOWN INDICATION
  14. TRAMADOL HCL [Concomitant]
     Indication: PRODUCT USED FOR UNKNOWN INDICATION
     Route: 002
  15. CELEBREX [Concomitant]
     Indication: PRODUCT USED FOR UNKNOWN INDICATION
  16. XANAX [Concomitant]
     Indication: PRODUCT USED FOR UNKNOWN INDICATION
  17. MIRAPEX [Concomitant]
     Indication: PRODUCT USED FOR UNKNOWN INDICATION

REACTIONS (11)
  - COMPLETED SUICIDE [None]
  - SUICIDE ATTEMPT [None]
  - DEPRESSION [None]
  - MUSCLE ATROPHY [None]
  - SUICIDAL IDEATION [None]
  - SYNCOPE [None]
  - LOGORRHOEA [None]
  - URINARY TRACT INFECTION [None]
  - MULTIPLE SCLEROSIS [None]
  - ANGER [None]
  - GENERAL PHYSICAL HEALTH DETERIORATION [None]
